FAERS Safety Report 18261266 (Version 1)
Quarter: 2020Q3

REPORT INFORMATION
  Report Type: Report from Study
  Country: FR (occurrence: FR)
  Receive Date: 20200914
  Receipt Date: 20200914
  Transmission Date: 20201105
  Serious: Yes (Other)
  Sender: FDA-Public Use
  Company Number: ALCN2016FR003368

PATIENT
  Age: 83 Year
  Sex: Female

DRUGS (13)
  1. MYDRIATICUM [Concomitant]
     Active Substance: TROPICAMIDE
     Indication: THERAPEUTIC PROCEDURE
     Dosage: UNK
     Route: 047
     Dates: start: 20160304
  2. PINAVERIUM BROMURO [Concomitant]
     Indication: PROPHYLAXIS
     Dosage: UNK
     Route: 048
     Dates: start: 1991
  3. FOSFOMYCIN TROMETAMOL [Concomitant]
     Active Substance: FOSFOMYCIN TROMETHAMINE
     Indication: URINARY TRACT INFECTION
     Dosage: UNK
     Route: 048
     Dates: start: 2014
  4. BROLUCIZUMAB. [Suspect]
     Active Substance: BROLUCIZUMAB
     Indication: MACULAR DEGENERATION
     Dosage: UNK
     Route: 031
     Dates: start: 20160309, end: 20160504
  5. BETAHISTINE DIHYDROCHLORIDE [Concomitant]
     Active Substance: BETAHISTINE
     Indication: DIZZINESS
     Dosage: UNK
     Route: 048
     Dates: start: 2006
  6. AMIODARONE HYDROCHLORIDE. [Concomitant]
     Active Substance: AMIODARONE HYDROCHLORIDE
     Indication: GENERAL PHYSICAL CONDITION
     Dosage: UNK
     Route: 048
     Dates: start: 201601
  7. MACROGOL [Concomitant]
     Active Substance: POLYETHYLENE GLYCOLS
     Indication: CONSTIPATION
     Dosage: UNK
     Route: 048
     Dates: start: 2006
  8. FLUORESCEINE [Concomitant]
     Active Substance: FLUORESCEIN SODIUM
     Indication: THERAPEUTIC PROCEDURE
     Dosage: UNK
     Route: 047
     Dates: start: 20160304
  9. IODE [Concomitant]
     Active Substance: IODINE
     Indication: THERAPEUTIC PROCEDURE
     Dosage: UNK
     Route: 047
     Dates: start: 20160304
  10. SOLIFENACIN SUCCINATE. [Concomitant]
     Active Substance: SOLIFENACIN SUCCINATE
     Indication: URINARY TRACT INFECTION
     Dosage: UNK
     Route: 048
     Dates: start: 2010
  11. EZETIMIBE. [Concomitant]
     Active Substance: EZETIMIBE
     Indication: HYPERCHOLESTEROLAEMIA
     Dosage: UNK
     Route: 048
     Dates: start: 2006
  12. UVEDOSE [Concomitant]
     Active Substance: CHOLECALCIFEROL
     Indication: GENERAL PHYSICAL CONDITION
     Dosage: UNK
     Route: 048
     Dates: start: 2013
  13. OXYBUPROCAINE [Concomitant]
     Active Substance: BENOXINATE
     Indication: THERAPEUTIC PROCEDURE
     Dosage: UNK
     Route: 047
     Dates: start: 20160304

REACTIONS (2)
  - Anterior chamber inflammation [Recovered/Resolved]
  - Retinal artery embolism [Not Recovered/Not Resolved]

NARRATIVE: CASE EVENT DATE: 20160512
